FAERS Safety Report 6141701-7 (Version None)
Quarter: 2009Q1

REPORT INFORMATION
  Report Type: 
  Country: None (occurrence: None)
  Receive Date: 20090331
  Receipt Date: 20090331
  Transmission Date: 20090719
  Serious: Yes (Death)
  Sender: FDA-Public Use
  Company Number: None

PATIENT
  Sex: Female
  Weight: 72.1 kg

DRUGS (2)
  1. CLOFARABINE 1MG/ML GENZYME [Suspect]
     Indication: ACUTE MYELOID LEUKAEMIA
     Dosage: 20MG/M2 DAYS 1-5 IV DRIP
     Route: 041
     Dates: start: 20090307, end: 20090311
  2. GEMTUZUAMB OZOGAMICIN 5MG/VIAL [Suspect]
     Indication: ACUTE MYELOID LEUKAEMIA
     Dosage: 3MG/M2 DAY 1, 4, 7 IV DRIP
     Route: 041
     Dates: start: 20090307, end: 20090313

REACTIONS (7)
  - ACIDOSIS [None]
  - BIOPSY BONE MARROW ABNORMAL [None]
  - DEPRESSED LEVEL OF CONSCIOUSNESS [None]
  - DYSPNOEA [None]
  - INFECTION [None]
  - LEFT VENTRICULAR DYSFUNCTION [None]
  - SOMNOLENCE [None]
